FAERS Safety Report 11589214 (Version 1)
Quarter: 2015Q4

REPORT INFORMATION
  Report Type: Report from Study
  Country: PL (occurrence: PL)
  Receive Date: 20151002
  Receipt Date: 20151002
  Transmission Date: 20160304
  Serious: Yes (Life-Threatening, Hospitalization, Disabling)
  Sender: FDA-Public Use
  Company Number: PL-SA-2015SA039938

PATIENT
  Age: 59 Year
  Sex: Male
  Weight: 85 kg

DRUGS (14)
  1. ENCORTON [Concomitant]
     Active Substance: PREDNISONE
  2. KALIPOZ-PROLONGATUM [Concomitant]
  3. TRITACE [Concomitant]
     Active Substance: RAMIPRIL
  4. OCTENISEPT [Concomitant]
     Dosage: ON THE WOUND AROUND THE MEDIAL MALLEOLUS
  5. ATORIS [Concomitant]
     Active Substance: ATORVASTATIN CALCIUM
  6. PENTOHEXAL [Concomitant]
  7. MAGNEZIN [Concomitant]
     Active Substance: MAGNESIUM CARBONATE
  8. BISOCARD [Concomitant]
     Active Substance: BISOPROLOL
  9. MESTINON [Concomitant]
     Active Substance: PYRIDOSTIGMINE BROMIDE
  10. HUMALOG [Concomitant]
     Active Substance: INSULIN LISPRO
     Dosage: (SELF-CONTROL: BREAKFAST: 18 - 24 UNITS, LUNCH/DINNER: 18-22 UNITS, SUPPER: 16-22 UNITS)
  11. LANTUS SOLOSTAR [Concomitant]
     Active Substance: INSULIN GLARGINE
     Dosage: DOSE: 18 - 22 UNITS ABOUT 10 P.M
  12. SOLOSTAR [Concomitant]
     Active Substance: DEVICE
  13. INSULIN GLARGINE [Suspect]
     Active Substance: INSULIN GLARGINE
     Indication: TYPE 1 DIABETES MELLITUS
     Route: 065
     Dates: start: 20140604
  14. POLPRAZOL [Concomitant]
     Active Substance: OMEPRAZOLE

REACTIONS (7)
  - Ophthalmoplegia [Recovering/Resolving]
  - Aphasia [Recovering/Resolving]
  - Diabetic foot [Recovering/Resolving]
  - VIIth nerve paralysis [Recovering/Resolving]
  - Monoparesis [Recovering/Resolving]
  - Hypoaesthesia [Recovering/Resolving]
  - Ischaemic stroke [Not Recovered/Not Resolved]

NARRATIVE: CASE EVENT DATE: 20141225
